FAERS Safety Report 7782188-8 (Version None)
Quarter: 2011Q3

REPORT INFORMATION
  Report Type: 
  Country: None (occurrence: None)
  Receive Date: 20110927
  Receipt Date: 20110919
  Transmission Date: 20111222
  Serious: Yes (Other)
  Sender: FDA-Public Use
  Company Number: US-SANOFI-AVENTIS-2011SA061677

PATIENT
  Age: 84 Year
  Sex: Female

DRUGS (3)
  1. SOLOSTAR [Suspect]
     Indication: TYPE 2 DIABETES MELLITUS
     Dates: start: 20110101
  2. NOVOLOG [Concomitant]
  3. LANTUS [Suspect]
     Indication: TYPE 2 DIABETES MELLITUS
     Dosage: 28 UNITS IN AM AND 22 UNITS IN PM
     Route: 058
     Dates: start: 20110101

REACTIONS (2)
  - MACULAR DEGENERATION [None]
  - EYE HAEMORRHAGE [None]
